FAERS Safety Report 17570853 (Version 1)
Quarter: 2020Q1

REPORT INFORMATION
  Report Type: Spontaneous
  Country: US (occurrence: US)
  Receive Date: 20200317
  Receipt Date: 20200317
  Transmission Date: 20200409
  Serious: Yes (Hospitalization)
  Sender: FDA-Public Use
  Company Number: None

PATIENT
  Sex: Male

DRUGS (2)
  1. DEFERASIROX TAB FOR ORAL SUSP [Suspect]
     Active Substance: DEFERASIROX
     Indication: DIARRHOEA
     Route: 048
     Dates: start: 20190417
  2. DEFERASIROX. [Concomitant]
     Active Substance: DEFERASIROX

REACTIONS (4)
  - Memory impairment [None]
  - Diarrhoea [None]
  - Sickle cell anaemia with crisis [None]
  - Product dose omission [None]
